FAERS Safety Report 14072199 (Version 2)
Quarter: 2017Q4

REPORT INFORMATION
  Report Type: Report from Study
  Country: CN (occurrence: CN)
  Receive Date: 20171011
  Receipt Date: 20171023
  Transmission Date: 20180321
  Serious: Yes (Death)
  Sender: FDA-Public Use
  Company Number: CN-ROCHE-2005758

PATIENT
  Age: 51 Year
  Sex: Male
  Weight: 42 kg

DRUGS (3)
  1. CARBOPLATIN. [Suspect]
     Active Substance: CARBOPLATIN
     Indication: SMALL CELL LUNG CANCER EXTENSIVE STAGE
     Dosage: ACHIEVE AN INITIAL TARGET AUC OF 5 MG/ML/MIN WILL BE ADMINISTERED ON DAY 1 OF EACH 21-DAY CYCLE DURI
     Route: 042
     Dates: start: 20170810
  2. ETOPOSIDE. [Suspect]
     Active Substance: ETOPOSIDE
     Indication: SMALL CELL LUNG CANCER EXTENSIVE STAGE
     Dosage: DATE OF MOST RECENT DOSE (140MG) OF ETOPOSIDE PRIOR TO EVENT: 03/SEP/2017 AT 18:10
     Route: 042
     Dates: start: 20170810
  3. ATEZOLIZUMAB. [Suspect]
     Active Substance: ATEZOLIZUMAB
     Indication: SMALL CELL LUNG CANCER EXTENSIVE STAGE
     Dosage: DATE OF MOST RECENT DOSE OF BLINDED ATEZOLIZUMAB PRIOR TO EVENT: 01/SEP/2017 AT 14:30, 1200 MG
     Route: 042
     Dates: start: 20170810

REACTIONS (1)
  - Sudden death [Fatal]

NARRATIVE: CASE EVENT DATE: 20171006
